FAERS Safety Report 14413237 (Version 1)
Quarter: 2018Q1

REPORT INFORMATION
  Report Type: Spontaneous
  Country: US (occurrence: US)
  Receive Date: 20180119
  Receipt Date: 20180119
  Transmission Date: 20180509
  Serious: Yes (Hospitalization)
  Sender: FDA-Public Use
  Company Number: None

PATIENT
  Age: 85 Year
  Sex: Male
  Weight: 82.3 kg

DRUGS (13)
  1. CARDIZEM CD [Suspect]
     Active Substance: DILTIAZEM HYDROCHLORIDE
  2. PRAVACHOL [Concomitant]
     Active Substance: PRAVASTATIN SODIUM
  3. LOSARTAN. [Suspect]
     Active Substance: LOSARTAN
  4. AMARYL [Concomitant]
     Active Substance: GLIMEPIRIDE
  5. LANTUS [Concomitant]
     Active Substance: INSULIN GLARGINE
  6. HYDRALAZINE [Suspect]
     Active Substance: HYDRALAZINE HYDROCHLORIDE
     Indication: HYPERTENSION
     Route: 048
  7. SYNTHROID [Concomitant]
     Active Substance: LEVOTHYROXINE SODIUM
  8. KDUC [Concomitant]
  9. ASA [Concomitant]
     Active Substance: ASPIRIN
  10. LAMICTAL [Concomitant]
     Active Substance: LAMOTRIGINE
  11. COREG [Suspect]
     Active Substance: CARVEDILOL
     Indication: HYPERTENSION
     Route: 048
  12. NEXIUM [Concomitant]
     Active Substance: ESOMEPRAZOLE MAGNESIUM
  13. PLAVIX [Concomitant]
     Active Substance: CLOPIDOGREL BISULFATE

REACTIONS (3)
  - Hypotension [None]
  - Bradycardia [None]
  - Dehydration [None]

NARRATIVE: CASE EVENT DATE: 20170803
